FAERS Safety Report 12552072 (Version 1)
Quarter: 2016Q3

REPORT INFORMATION
  Report Type: Spontaneous
  Country: US (occurrence: US)
  Receive Date: 20160713
  Receipt Date: 20160713
  Transmission Date: 20161109
  Serious: No
  Sender: FDA-Public Use
  Company Number: US-BAYER-2016-132689

PATIENT
  Age: 62 Year
  Sex: Female

DRUGS (1)
  1. BETASERON [Suspect]
     Active Substance: INTERFERON BETA-1B
     Indication: MULTIPLE SCLEROSIS
     Dosage: 0.3 MG, QOD
     Route: 058
     Dates: start: 2015

REACTIONS (5)
  - Poor quality sleep [None]
  - Laceration [Recovered/Resolved]
  - Stress [None]
  - Depression [None]
  - Fall [Recovered/Resolved]

NARRATIVE: CASE EVENT DATE: 2015
